FAERS Safety Report 4744405-8 (Version None)
Quarter: 2005Q3

REPORT INFORMATION
  Report Type: 
  Country: None (occurrence: None)
  Receive Date: 20050811
  Receipt Date: 20050811
  Transmission Date: 20060218
  Serious: Yes (Death, Life-Threatening, Hospitalization, Disabling)
  Sender: FDA-Public Use
  Company Number: None

PATIENT
  Sex: Male
  Weight: 79.3795 kg

DRUGS (9)
  1. LINDANE [Suspect]
     Indication: ACARODERMATITIS
     Dosage: SEE ITEM B5
     Dates: start: 20030414
  2. ENALAPRIL [Concomitant]
  3. AMILORIDE HCL [Concomitant]
  4. FLOMAX [Concomitant]
  5. LIPITOR [Concomitant]
  6. FAMOTIDINE [Concomitant]
  7. CELEBREX [Concomitant]
  8. VIAGRA [Concomitant]
  9. TYLENOL [Concomitant]

REACTIONS (10)
  - BLOOD PRESSURE DECREASED [None]
  - BRAIN DAMAGE [None]
  - CONFUSIONAL STATE [None]
  - CONVULSION [None]
  - DELIRIUM [None]
  - DRUG TOXICITY [None]
  - HYPOXIC ENCEPHALOPATHY [None]
  - MENTAL DISORDER [None]
  - NEUROTOXICITY [None]
  - TREMOR [None]
